FAERS Safety Report 7177021-1 (Version None)
Quarter: 2010Q4

REPORT INFORMATION
  Report Type: 
  Country: None (occurrence: None)
  Receive Date: 20101220
  Receipt Date: 20101208
  Transmission Date: 20110411
  Serious: Yes (Other)
  Sender: FDA-Public Use
  Company Number: CA-GENZYME-THYM-1002168

PATIENT
  Age: 49 Year
  Sex: Female

DRUGS (2)
  1. THYMOGLOBULIN [Suspect]
     Indication: APLASTIC ANAEMIA
     Dosage: UNK
  2. PLATELETS [Concomitant]
     Indication: APLASTIC ANAEMIA
     Route: 042

REACTIONS (1)
  - CYSTITIS HAEMORRHAGIC [None]
